FAERS Safety Report 13684076 (Version 1)
Quarter: 2017Q2

REPORT INFORMATION
  Report Type: Spontaneous
  Country: US (occurrence: US)
  Receive Date: 20170623
  Receipt Date: 20170623
  Transmission Date: 20170830
  Serious: No
  Sender: FDA-Public Use
  Company Number: US-ASTELLAS-2017US007320

PATIENT
  Sex: Female

DRUGS (1)
  1. VESICARE [Suspect]
     Active Substance: SOLIFENACIN SUCCINATE
     Indication: NOCTURIA
     Route: 065
     Dates: start: 20170221

REACTIONS (5)
  - Malaise [Unknown]
  - Drug ineffective [Unknown]
  - Headache [Unknown]
  - Abdominal pain upper [Unknown]
  - Nausea [Unknown]
